FAERS Safety Report 7994069-5 (Version None)
Quarter: 2011Q4

REPORT INFORMATION
  Report Type: 
  Country: None (occurrence: None)
  Receive Date: 20111220
  Receipt Date: 20111212
  Transmission Date: 20120403
  Serious: Yes (Hospitalization)
  Sender: FDA-Public Use
  Company Number: US-BAYER-201037255NA

PATIENT
  Age: 28 Year
  Sex: Female
  Weight: 63 kg

DRUGS (6)
  1. YASMIN [Suspect]
     Indication: ACNE
  2. YAZ [Suspect]
     Indication: PREMENSTRUAL SYNDROME
  3. HYOSCYAMINE [Concomitant]
     Indication: GASTROINTESTINAL DISORDER THERAPY
     Dosage: UNK
     Dates: start: 20070101
  4. YASMIN [Suspect]
     Indication: PREMENSTRUAL SYNDROME
     Dosage: UNK
     Dates: start: 20000101, end: 20060101
  5. NEXIUM [Concomitant]
     Indication: GASTROINTESTINAL DISORDER THERAPY
     Dosage: UNK
     Dates: start: 20070101
  6. YAZ [Suspect]
     Indication: ACNE
     Dosage: UNK
     Route: 048
     Dates: start: 20070601, end: 20070710

REACTIONS (7)
  - GASTROINTESTINAL HAEMORRHAGE [None]
  - GASTROINTESTINAL DISORDER [None]
  - THROMBOSIS [None]
  - COLITIS ISCHAEMIC [None]
  - PAIN [None]
  - EMOTIONAL DISTRESS [None]
  - INJURY [None]
